FAERS Safety Report 15652144 (Version 5)
Quarter: 2021Q1

REPORT INFORMATION
  Report Type: Spontaneous
  Country: US (occurrence: US)
  Receive Date: 20181123
  Receipt Date: 20210217
  Transmission Date: 20210419
  Serious: Yes (Other)
  Sender: FDA-Public Use
  Company Number: US-GILEAD-2018-0376094

PATIENT
  Age: 52 Year
  Sex: Male
  Weight: 72.56 kg

DRUGS (76)
  1. ATRIPLA [Suspect]
     Active Substance: EFAVIRENZ\EMTRICITABINE\TENOFOVIR DISOPROXIL FUMARATE
     Indication: HIV INFECTION
     Dosage: UNK
     Route: 048
     Dates: start: 200902, end: 20160115
  2. ASPIRIN [ACETYLSALICYLIC ACID] [Concomitant]
     Active Substance: ASPIRIN
  3. CEFTRIAXONE. [Concomitant]
     Active Substance: CEFTRIAXONE
  4. CYCLOBENZAPRINE. [Concomitant]
     Active Substance: CYCLOBENZAPRINE
  5. GABAPENTIN. [Concomitant]
     Active Substance: GABAPENTIN
  6. PROPYLENE GLYCOL [Concomitant]
     Active Substance: PROPYLENE GLYCOL
  7. CEPHALEXINE [Concomitant]
     Active Substance: CEPHALEXIN
  8. VENLAFAXINE [Concomitant]
     Active Substance: VENLAFAXINE HYDROCHLORIDE
  9. CLINDAMYCIN. [Concomitant]
     Active Substance: CLINDAMYCIN
  10. LATANOPROST. [Concomitant]
     Active Substance: LATANOPROST
  11. MOMETASONE [Concomitant]
     Active Substance: MOMETASONE
  12. OXYBUTYNIN. [Concomitant]
     Active Substance: OXYBUTYNIN CHLORIDE
  13. CHANTIX [Concomitant]
     Active Substance: VARENICLINE TARTRATE
  14. DILAUDID [Concomitant]
     Active Substance: HYDROMORPHONE HYDROCHLORIDE
  15. ESOMEPRAZOLE. [Concomitant]
     Active Substance: ESOMEPRAZOLE MAGNESIUM
  16. FAMOTIDINE. [Concomitant]
     Active Substance: FAMOTIDINE
  17. MYRBETRIQ [Concomitant]
     Active Substance: MIRABEGRON
  18. NYSTATIN. [Concomitant]
     Active Substance: NYSTATIN
  19. PROCARBAZINE [Concomitant]
     Active Substance: PROCARBAZINE
  20. LOMUSTINE. [Concomitant]
     Active Substance: LOMUSTINE
  21. BECLOMETHASONE [BECLOMETASONE] [Concomitant]
     Active Substance: BECLOMETHASONE
  22. VIAGRA [Concomitant]
     Active Substance: SILDENAFIL CITRATE
  23. AFLURIA NOS [Concomitant]
     Active Substance: INFLUENZA VIRUS VACCINE TRIVALENT TYPE A+B AFLURIA
  24. ADAPALENE. [Concomitant]
     Active Substance: ADAPALENE
  25. STRIBILD [Suspect]
     Active Substance: COBICISTAT\ELVITEGRAVIR\EMTRICITABINE\TENOFOVIR DISOPROXIL FUMARATE
     Indication: HIV INFECTION
     Dosage: UNK
     Route: 048
     Dates: start: 201601, end: 201606
  26. FLUTICASONE. [Concomitant]
     Active Substance: FLUTICASONE
  27. CETRIZINE [Concomitant]
     Active Substance: CETIRIZINE HYDROCHLORIDE
  28. HYDROXYZINE HCL [Concomitant]
     Active Substance: HYDROXYZINE HYDROCHLORIDE
  29. MIRTAZAPINE. [Concomitant]
     Active Substance: MIRTAZAPINE
  30. NEXIUM I.V. [Concomitant]
     Active Substance: ESOMEPRAZOLE SODIUM
  31. OTEZLA [Concomitant]
     Active Substance: APREMILAST
  32. BICILLINE [Concomitant]
  33. CHLORHEXIDINE [Concomitant]
     Active Substance: CHLORHEXIDINE
  34. GENVOYA [Concomitant]
     Active Substance: COBICISTAT\ELVITEGRAVIR\EMTRICITABINE\TENOFOVIR ALAFENAMIDE FUMARATE
  35. CEFAZOLIN [Concomitant]
     Active Substance: CEFAZOLIN
  36. CENTRUM A TO ZINC [Concomitant]
     Active Substance: MINERALS\VITAMINS
  37. CYMBALTA [Concomitant]
     Active Substance: DULOXETINE HYDROCHLORIDE
  38. DOXYCYCLINE HYCLATE. [Concomitant]
     Active Substance: DOXYCYCLINE HYCLATE
  39. FLONASE [Concomitant]
     Active Substance: FLUTICASONE PROPIONATE
  40. IBUPROFEN. [Concomitant]
     Active Substance: IBUPROFEN
  41. MARINOL [Concomitant]
     Active Substance: DRONABINOL
  42. TOLTERODINE TARTRATE. [Concomitant]
     Active Substance: TOLTERODINE TARTRATE
  43. TRAVATAN [Concomitant]
     Active Substance: TRAVOPROST
  44. TYLENOL [Concomitant]
     Active Substance: ACETAMINOPHEN
  45. SULFASALAZINE. [Concomitant]
     Active Substance: SULFASALAZINE
  46. AMOXICILLIN. [Concomitant]
     Active Substance: AMOXICILLIN
  47. ALEVE [Concomitant]
     Active Substance: NAPROXEN SODIUM
  48. TRIUMEQ [Concomitant]
     Active Substance: ABACAVIR SULFATE\DOLUTEGRAVIR SODIUM\LAMIVUDINE
  49. ONDANSETRON [Concomitant]
     Active Substance: ONDANSETRON
  50. VINCRISTINE [Concomitant]
     Active Substance: VINCRISTINE
  51. TRAMADOL. [Concomitant]
     Active Substance: TRAMADOL
  52. ZANTAC [Concomitant]
     Active Substance: RANITIDINE HYDROCHLORIDE
  53. TRETINOIN. [Concomitant]
     Active Substance: TRETINOIN
  54. MENACTRA [Concomitant]
     Active Substance: NEISSERIA MENINGITIDIS GROUP A CAPSULAR POLYSACCHARIDE DIPHTHERIA TOXOID CONJUGATE ANTIGEN\NEISSERIA MENINGITIDIS GROUP C CAPSULAR POLYSACCHARIDE DIPHTHERIA TOXOID CONJUGATE ANTIGEN\NEISSERIA MENINGITIDIS GROUP W-135 CAPSULAR POLYSACCHARIDE DIPHTHERIA TOXOID CONJUGATE ANTIGEN\NEISSERIA MENINGITIDIS
  55. AMMONIUM LACTATE. [Concomitant]
     Active Substance: AMMONIUM LACTATE
  56. VITAMIN D [VITAMIN D NOS] [Concomitant]
     Active Substance: VITAMIN D NOS
  57. CLONIDINE. [Concomitant]
     Active Substance: CLONIDINE
  58. DIAZEPAM. [Concomitant]
     Active Substance: DIAZEPAM
  59. NICOTINE. [Concomitant]
     Active Substance: NICOTINE
  60. OXYCODONE [Concomitant]
     Active Substance: OXYCODONE
  61. PANTOPRAZOLE [Concomitant]
     Active Substance: PANTOPRAZOLE
  62. PREDNISONE. [Concomitant]
     Active Substance: PREDNISONE
  63. ATENOLOL. [Concomitant]
     Active Substance: ATENOLOL
  64. MINOCYCLINE [Concomitant]
     Active Substance: MINOCYCLINE HYDROCHLORIDE
  65. ZOFRAN [Concomitant]
     Active Substance: ONDANSETRON HYDROCHLORIDE
  66. CIALIS [Concomitant]
     Active Substance: TADALAFIL
  67. DRONABINOL. [Concomitant]
     Active Substance: DRONABINOL
  68. FENTANYL. [Concomitant]
     Active Substance: FENTANYL
  69. METHYLPREDNISOLONE. [Concomitant]
     Active Substance: METHYLPREDNISOLONE
  70. MORPHINE [Concomitant]
     Active Substance: MORPHINE
  71. SUMATRIPTAN. [Concomitant]
     Active Substance: SUMATRIPTAN
  72. AZITHROMYCIN ANHYDROUS. [Concomitant]
     Active Substance: AZITHROMYCIN ANHYDROUS
  73. PENICILLIN VK [Concomitant]
     Active Substance: PENICILLIN V POTASSIUM
  74. ERGOCALCIFEROL. [Concomitant]
     Active Substance: ERGOCALCIFEROL
  75. ZYRTEC [Concomitant]
     Active Substance: CETIRIZINE HYDROCHLORIDE
  76. OMEPRAZOLE. [Concomitant]
     Active Substance: OMEPRAZOLE

REACTIONS (10)
  - Renal impairment [Not Recovered/Not Resolved]
  - Emotional distress [Unknown]
  - Anxiety [Unknown]
  - Bone density decreased [Unknown]
  - Osteoporosis [Unknown]
  - Chronic kidney disease [Not Recovered/Not Resolved]
  - Renal disorder [Unknown]
  - Economic problem [Unknown]
  - Pain [Unknown]
  - Anhedonia [Unknown]

NARRATIVE: CASE EVENT DATE: 2016
